FAERS Safety Report 4690577-3 (Version None)
Quarter: 2005Q2

REPORT INFORMATION
  Report Type: 
  Country: None (occurrence: None)
  Receive Date: 20050613
  Receipt Date: 20040507
  Transmission Date: 20051028
  Serious: Yes (Hospitalization)
  Sender: FDA-Public Use
  Company Number: 185942

PATIENT
  Age: 42 Year
  Sex: Male

DRUGS (8)
  1. AVONEX [Suspect]
     Indication: MULTIPLE SCLEROSIS
     Dosage: 30 UG; QW; IM
     Route: 030
     Dates: start: 19980101, end: 20031022
  2. AVONEX [Suspect]
     Indication: MULTIPLE SCLEROSIS
     Dosage: 30 UG; QW; IM
     Route: 030
     Dates: start: 20031029
  3. ATARAX [Concomitant]
  4. PRAXINOR    (THEODRENALINE CAFEDRINE) [Concomitant]
  5. DITROPAN [Concomitant]
  6. NOZINAN [Concomitant]
  7. IMOVANE [Concomitant]
  8. FONZYLANE [Concomitant]

REACTIONS (7)
  - ABDOMINAL PAIN UPPER [None]
  - DIARRHOEA [None]
  - ECZEMA INFECTED [None]
  - FUNGAL SKIN INFECTION [None]
  - INFLUENZA LIKE ILLNESS [None]
  - VOMITING [None]
  - WHITE BLOOD CELL COUNT DECREASED [None]
